FAERS Safety Report 5095952-3 (Version None)
Quarter: 2006Q3

REPORT INFORMATION
  Report Type: 
  Country: None (occurrence: None)
  Receive Date: 20060905
  Receipt Date: 20060829
  Transmission Date: 20061208
  Serious: Yes (Other)
  Sender: FDA-Public Use
  Company Number: GB-BRACCO-BRO-010451

PATIENT
  Age: 34 Year
  Sex: Female

DRUGS (3)
  1. NIOPAM [Suspect]
     Route: 042
     Dates: start: 20060413, end: 20060413
  2. THYROXINE [Concomitant]
     Route: 050
  3. STEROIDS [Concomitant]
     Route: 050

REACTIONS (2)
  - MUSCULAR WEAKNESS [None]
  - RASH [None]
